FAERS Safety Report 18238531 (Version 2)
Quarter: 2020Q4

REPORT INFORMATION
  Report Type: Spontaneous
  Country: US (occurrence: US)
  Receive Date: 20200907
  Receipt Date: 20201019
  Transmission Date: 20210113
  Serious: Yes (Hospitalization, Other)
  Sender: FDA-Public Use
  Company Number: US-B.I. PHARMACEUTICALS,INC./RIDGEFIELD-2020-BI-044581

PATIENT
  Age: 42 Year
  Sex: Male
  Weight: 154.7 kg

DRUGS (13)
  1. NORVASC [Concomitant]
     Active Substance: AMLODIPINE BESYLATE
     Indication: HYPERTENSION
     Dosage: 10 MG TABLET, TAKE 10 MG BY MOUTH DAILY
     Route: 048
  2. VITAMINS NOS [Concomitant]
     Active Substance: VITAMINS
     Indication: PRODUCT USED FOR UNKNOWN INDICATION
     Dosage: TAKE 1 CAPSULE BY MOUTH DAILY
     Route: 048
  3. JARDIANCE [Suspect]
     Active Substance: EMPAGLIFLOZIN
     Indication: TYPE 2 DIABETES MELLITUS
     Dosage: 25 MG TAB, TAKE 25 MG BY MOUTH DAILY
     Route: 048
     Dates: start: 20170831
  4. HYZAAR [Concomitant]
     Active Substance: HYDROCHLOROTHIAZIDE\LOSARTAN POTASSIUM
     Indication: PRODUCT USED FOR UNKNOWN INDICATION
     Dosage: 100-25 MG PER TABLET, TAKE 1 TABLET BY MOUTH DAILY
     Route: 048
  5. BENADRYL [Concomitant]
     Active Substance: DIPHENHYDRAMINE HYDROCHLORIDE
     Indication: PRODUCT USED FOR UNKNOWN INDICATION
     Dosage: CAPSULE, TAKE 1 CAPSULE BY MOUTH EVERY 6 HOURS AS NEEDED FOR ITCHING FREQUENCY:
     Route: 048
  6. COLACE [Concomitant]
     Active Substance: DOCUSATE SODIUM
     Indication: PRODUCT USED FOR UNKNOWN INDICATION
     Dosage: CAPSULE, TAKE 1 CAPSULE BY MOUTH 2 TIMES DAILY FOR 10 DAYS
     Route: 048
  7. COREG [Concomitant]
     Active Substance: CARVEDILOL
     Indication: HYPERTENSION
     Dosage: TABLET, TAKE 1 TABLET  BY MOUTH 2 TIMES DAILY WITH MEALS
     Route: 048
  8. NOVOLOG [Concomitant]
     Active Substance: INSULIN ASPART
     Indication: PRODUCT USED FOR UNKNOWN INDICATION
     Dosage: 100 UNITS/ML INJECTION, INJECT 5 UNITS INTO THE SKIN 3 TIMES DAILY BEFORE MEALS
     Route: 058
  9. LEVEMIR [Concomitant]
     Active Substance: INSULIN DETEMIR
     Indication: PRODUCT USED FOR UNKNOWN INDICATION
     Dosage: 100 UNITS/ML INJECTION, INJECT 20 UNITS INTO THE SKIN 2 TIMES DAILY
     Route: 058
  10. VITAMIN C [Concomitant]
     Active Substance: ASCORBIC ACID
     Indication: PRODUCT USED FOR UNKNOWN INDICATION
     Dosage: 250 MG TABLET, TAKE 1 TABLET (250 MG TOTAL) BY MOUTH DAILY
     Route: 048
  11. ALLEGRA [Concomitant]
     Active Substance: FEXOFENADINE HYDROCHLORIDE
     Indication: PRODUCT USED FOR UNKNOWN INDICATION
     Dosage: 180 MG TABLET, TAKE 180 MG BY MOUTH DAILY
     Route: 048
  12. APRESOLINE HYDROCHLORIDE [Concomitant]
     Active Substance: HYDRALAZINE HYDROCHLORIDE
     Indication: HYPERTENSION
     Dosage: TABLET, TAKE 1 TABLET (25 MG TOTAL) BY MOUTH 3 (THREE) TIMES DAILY
     Route: 048
  13. TESSALON [Concomitant]
     Active Substance: BENZONATATE
     Indication: COUGH
     Dosage: CAPSULE, TAKE 1 CAPSULE 3  TIMES DAILY AS NEEDED FOR COUGH FREQUENCY:
     Route: 048

REACTIONS (3)
  - Sepsis [Recovered/Resolved]
  - Necrotising soft tissue infection [Unknown]
  - Perirectal abscess [Recovered/Resolved]

NARRATIVE: CASE EVENT DATE: 20180130
